FAERS Safety Report 6583701-9 (Version None)
Quarter: 2010Q1

REPORT INFORMATION
  Report Type: 
  Country: None (occurrence: None)
  Receive Date: 20100212
  Receipt Date: 20100212
  Transmission Date: 20100710
  Serious: No
  Sender: FDA-Public Use
  Company Number: None

PATIENT
  Age: 47 Year
  Sex: Male
  Weight: 79.3795 kg

DRUGS (1)
  1. PROMETHAZINE HCL AND CODEINE [Suspect]
     Indication: BRONCHITIS
     Dosage: 2 TEASPOONS AT BEDTIME PO 3 DOSES
     Route: 048
     Dates: start: 20091019, end: 20091021

REACTIONS (1)
  - PRODUCT MEASURED POTENCY ISSUE [None]
